FAERS Safety Report 15583559 (Version 1)
Quarter: 2018Q4

REPORT INFORMATION
  Report Type: Spontaneous
  Country: BR (occurrence: BR)
  Receive Date: 20181104
  Receipt Date: 20181104
  Transmission Date: 20190205
  Serious: Yes (Other)
  Sender: FDA-Public Use
  Company Number: BR-TORRENT-00004697

PATIENT
  Sex: Male

DRUGS (2)
  1. LAMITOR CD [Suspect]
     Active Substance: LAMOTRIGINE
     Indication: EPILEPSY
     Dosage: UNKNOWN
  2. LAMITOR [Concomitant]
     Active Substance: LAMOTRIGINE
     Indication: EPILEPSY
     Dosage: UNKNOWN

REACTIONS (2)
  - Product substitution issue [Unknown]
  - Drug ineffective [Unknown]
